FAERS Safety Report 11408889 (Version 1)
Quarter: 2015Q3

REPORT INFORMATION
  Report Type: Spontaneous
  Country: JP (occurrence: JP)
  Receive Date: 20150824
  Receipt Date: 20150824
  Transmission Date: 20151125
  Serious: Yes (Death)
  Sender: FDA-Public Use
  Company Number: JP-CIPLA LTD.-2015JP06704

PATIENT

DRUGS (2)
  1. TRAMETINIB [Suspect]
     Active Substance: TRAMETINIB
     Indication: PANCREATIC CARCINOMA
     Dosage: 2.0 MG, QD
     Route: 048
  2. GEMCITABINE [Suspect]
     Active Substance: GEMCITABINE\GEMCITABINE HYDROCHLORIDE
     Indication: PANCREATIC CARCINOMA
     Dosage: 1000 MG/M2, OVER 30 MIN, ONCE WEEKLY FOR THE FIRST 3 WEEKS FOLLOWED BY A 1-WEEK WASHOUT PERIOD
     Route: 042

REACTIONS (3)
  - Interstitial lung disease [Fatal]
  - Stomatitis [Unknown]
  - Rash [Unknown]
